FAERS Safety Report 5591952-5 (Version None)
Quarter: 2008Q1

REPORT INFORMATION
  Report Type: 
  Country: None (occurrence: None)
  Receive Date: 20080115
  Receipt Date: 20080107
  Transmission Date: 20080703
  Serious: Yes (Hospitalization, Disabling)
  Sender: FDA-Public Use
  Company Number: FR-ELI_LILLY_AND_COMPANY-FR200711004939

PATIENT
  Age: 67 Year
  Sex: Male
  Weight: 65 kg

DRUGS (3)
  1. GEMZAR [Suspect]
     Indication: PANCREATIC CARCINOMA METASTATIC
     Dosage: 2000 MG, OTHER
     Route: 042
     Dates: start: 20070524, end: 20070830
  2. GEMZAR [Suspect]
     Dosage: 2000 MG, OTHER
     Route: 042
     Dates: start: 20070914
  3. OXALIPLATIN [Concomitant]
     Indication: PANCREATIC CARCINOMA METASTATIC
     Dosage: 140 MG, OTHER
     Route: 042
     Dates: start: 20070524, end: 20070830

REACTIONS (2)
  - NEUROPATHY PERIPHERAL [None]
  - PULMONARY HYPERTENSION [None]
